FAERS Safety Report 21488234 (Version 1)
Quarter: 2022Q4

REPORT INFORMATION
  Report Type: Report from Study
  Country: US (occurrence: US)
  Receive Date: 20221020
  Receipt Date: 20221020
  Transmission Date: 20230112
  Serious: Yes (Hospitalization)
  Sender: FDA-Public Use
  Company Number: US-ABBVIE-22K-163-4318307-00

PATIENT
  Age: 86 Year
  Sex: Male

DRUGS (3)
  1. IMBRUVICA [Suspect]
     Active Substance: IBRUTINIB
     Indication: Lymphadenopathy
     Route: 048
     Dates: end: 2022
  2. IMBRUVICA [Suspect]
     Active Substance: IBRUTINIB
     Indication: Lymphadenopathy
     Route: 048
     Dates: start: 2022
  3. Covid-19 vaccine [Concomitant]
     Indication: COVID-19 immunisation
     Dosage: BOOSTERS DOSE
     Route: 030

REACTIONS (10)
  - COVID-19 [Unknown]
  - Hypoacusis [Unknown]
  - Blood pressure abnormal [Unknown]
  - Fluid retention [Unknown]
  - Myalgia [Recovering/Resolving]
  - Sciatic nerve neuropathy [Unknown]
  - Arthralgia [Unknown]
  - Haemorrhage [Unknown]
  - Stomatitis [Recovered/Resolved]
  - Anaemia [Recovering/Resolving]

NARRATIVE: CASE EVENT DATE: 20220701
